FAERS Safety Report 6014272-3 (Version None)
Quarter: 2008Q4

REPORT INFORMATION
  Report Type: 
  Country: None (occurrence: None)
  Receive Date: 20081216
  Receipt Date: 20080717
  Transmission Date: 20090506
  Serious: Yes (Hospitalization)
  Sender: FDA-Public Use
  Company Number: US-WYE-H05134108

PATIENT
  Age: 52 Year
  Sex: Female

DRUGS (5)
  1. EFFEXOR XR [Suspect]
     Indication: ANXIETY
     Dosage: 37.56 MG 1X PER 1 DAY, ORAL : ^TAKING BEADS FROM 37.5 MG CAPSULE^ : 37.5 MG 1X PER 2 DAY, ORAL
     Route: 048
     Dates: start: 20061001, end: 20070101
  2. EFFEXOR XR [Suspect]
     Indication: PANIC ATTACK
     Dosage: 37.56 MG 1X PER 1 DAY, ORAL : ^TAKING BEADS FROM 37.5 MG CAPSULE^ : 37.5 MG 1X PER 2 DAY, ORAL
     Route: 048
     Dates: start: 20061001, end: 20070101
  3. EFFEXOR XR [Suspect]
     Indication: ANXIETY
     Dosage: 37.56 MG 1X PER 1 DAY, ORAL : ^TAKING BEADS FROM 37.5 MG CAPSULE^ : 37.5 MG 1X PER 2 DAY, ORAL
     Route: 048
     Dates: start: 20070101
  4. EFFEXOR XR [Suspect]
     Indication: PANIC ATTACK
     Dosage: 37.56 MG 1X PER 1 DAY, ORAL : ^TAKING BEADS FROM 37.5 MG CAPSULE^ : 37.5 MG 1X PER 2 DAY, ORAL
     Route: 048
     Dates: start: 20070101
  5. LEVOTHYROXINE SODIUM [Concomitant]

REACTIONS (16)
  - ANXIETY [None]
  - BLOOD POTASSIUM DECREASED [None]
  - BLOOD PRESSURE INCREASED [None]
  - BLOOD SODIUM DECREASED [None]
  - BODY TEMPERATURE INCREASED [None]
  - CHILLS [None]
  - DEHYDRATION [None]
  - DIARRHOEA [None]
  - DISORIENTATION [None]
  - DRUG WITHDRAWAL SYNDROME [None]
  - FATIGUE [None]
  - FEELING ABNORMAL [None]
  - INTENTIONAL DRUG MISUSE [None]
  - NAUSEA [None]
  - PALPITATIONS [None]
  - TREMOR [None]
